FAERS Safety Report 4361082-9 (Version None)
Quarter: 2004Q2

REPORT INFORMATION
  Report Type: 
  Country: None (occurrence: None)
  Receive Date: 20040520
  Receipt Date: 20040305
  Transmission Date: 20050107
  Serious: Yes (Other)
  Sender: FDA-Public Use
  Company Number: US-ROCHE-360922

PATIENT
  Age: 17 Year
  Sex: Female
  Weight: 52 kg

DRUGS (2)
  1. ACCUTANE [Suspect]
     Indication: ACNE
     Dosage: STRENGTH REPORTED AS 20 MG AND 10 MG TABLETS.
     Route: 048
     Dates: start: 20020619, end: 20021220
  2. BIRTH CONTROL PILLS NOS [Concomitant]
     Indication: CONTRACEPTION
     Route: 048

REACTIONS (4)
  - ALOPECIA [None]
  - DEPRESSION [None]
  - MUSCULOSKELETAL PAIN [None]
  - SUICIDAL IDEATION [None]
